FAERS Safety Report 9777681 (Version 1)
Quarter: 2013Q4

REPORT INFORMATION
  Report Type: Spontaneous
  Country: GB (occurrence: GB)
  Receive Date: 20131223
  Receipt Date: 20131223
  Transmission Date: 20140711
  Serious: Yes (Hospitalization)
  Sender: FDA-Public Use
  Company Number: GB-ROCHE-1322822

PATIENT
  Age: 18 Year
  Sex: Male
  Weight: 63 kg

DRUGS (3)
  1. NAPROXEN [Suspect]
     Indication: JOINT INJURY
     Route: 048
     Dates: start: 20131125, end: 20131127
  2. CO-CODAMOL [Concomitant]
     Route: 048
     Dates: start: 20131125
  3. PARACETAMOL [Concomitant]
     Route: 048
     Dates: start: 20131024

REACTIONS (2)
  - Acute abdomen [Recovering/Resolving]
  - Gastric ulcer [Recovering/Resolving]
